FAERS Safety Report 6879166-X (Version None)
Quarter: 2010Q3

REPORT INFORMATION
  Report Type: 
  Country: None (occurrence: None)
  Receive Date: 20100728
  Receipt Date: 20100713
  Transmission Date: 20110219
  Serious: Yes (Hospitalization, Other)
  Sender: FDA-Public Use
  Company Number: PHHY2010JP26248

PATIENT
  Age: 87 Year
  Sex: Female

DRUGS (8)
  1. FAMCICLOVIR [Suspect]
     Indication: HERPES ZOSTER
     Dosage: 1500 MG
     Route: 048
     Dates: start: 20100319, end: 20100321
  2. BETAMETHASONE VALERATE [Concomitant]
     Dosage: UNK
  3. ASPIRIN [Concomitant]
     Dosage: UNK
  4. ATORVASTATIN CALCIUM [Concomitant]
     Dosage: UNK
  5. CIMETIDINE [Concomitant]
     Dosage: UNK
  6. ALFACALCIDOL [Concomitant]
     Dosage: UNK
  7. LIMAPROST [Concomitant]
     Dosage: UNK
  8. CANDESARTAN CILEXETIL [Concomitant]
     Dosage: UNK

REACTIONS (8)
  - ABNORMAL BEHAVIOUR [None]
  - BLOOD PRESSURE DIASTOLIC INCREASED [None]
  - BLOOD PRESSURE SYSTOLIC INCREASED [None]
  - DELIRIUM [None]
  - DISORIENTATION [None]
  - IMPULSE-CONTROL DISORDER [None]
  - RESTLESSNESS [None]
  - TREMOR [None]
